FAERS Safety Report 13440873 (Version 1)
Quarter: 2017Q2

REPORT INFORMATION
  Report Type: Spontaneous
  Country: FR (occurrence: FR)
  Receive Date: 20170413
  Receipt Date: 20170413
  Transmission Date: 20170830
  Serious: Yes (Hospitalization, Other)
  Sender: FDA-Public Use
  Company Number: FR-ABBVIE-17P-056-1923074-00

PATIENT
  Age: 2 Month
  Sex: Male

DRUGS (5)
  1. HEXAVALENT VACCINE [Concomitant]
     Indication: PRODUCT USED FOR UNKNOWN INDICATION
     Dates: start: 20170216
  2. HEXAVALENT VACCINE [Concomitant]
     Dates: start: 20170327
  3. PREVNAR 13 [Concomitant]
     Active Substance: PNEUMOCOCCAL 13-VALENT CONJUGATE VACCINE
     Dates: start: 20170327
  4. SYNAGIS [Suspect]
     Active Substance: PALIVIZUMAB
     Indication: PRODUCT USED FOR UNKNOWN INDICATION
     Route: 030
     Dates: start: 20170214
  5. PREVNAR 13 [Concomitant]
     Active Substance: PNEUMOCOCCAL 13-VALENT CONJUGATE VACCINE
     Indication: PRODUCT USED FOR UNKNOWN INDICATION
     Dates: start: 20170216

REACTIONS (3)
  - Pyrexia [Unknown]
  - Respiratory syncytial virus infection [Recovered/Resolved]
  - Intraventricular haemorrhage [Unknown]

NARRATIVE: CASE EVENT DATE: 20170315
